FAERS Safety Report 17655788 (Version 1)
Quarter: 2020Q2

REPORT INFORMATION
  Report Type: Report from Study
  Country: US (occurrence: US)
  Receive Date: 20200410
  Receipt Date: 20200410
  Transmission Date: 20200713
  Serious: Yes (Hospitalization, Other)
  Sender: FDA-Public Use
  Company Number: US-GILEAD-2020-0458212

PATIENT
  Sex: Male

DRUGS (1)
  1. EMTRICITABINE;TENOFOVIR DISOPROXIL FUMARATE [Suspect]
     Active Substance: EMTRICITABINE\TENOFOVIR DISOPROXIL FUMARATE
     Indication: HIV INFECTION
     Dosage: 1 DOSAGE FORM, QD
     Route: 048

REACTIONS (7)
  - Pneumocystis jirovecii pneumonia [Not Recovered/Not Resolved]
  - Near death experience [Unknown]
  - Malaise [Unknown]
  - Intentional product use issue [Not Recovered/Not Resolved]
  - Acquired immunodeficiency syndrome [Unknown]
  - Influenza [Unknown]
  - Condition aggravated [Unknown]
